FAERS Safety Report 19661240 (Version 1)
Quarter: 2021Q3

REPORT INFORMATION
  Report Type: Spontaneous
  Country: FR (occurrence: FR)
  Receive Date: 20210805
  Receipt Date: 20210805
  Transmission Date: 20211014
  Serious: Yes (Death)
  Sender: FDA-Public Use
  Company Number: FR-PFIZER INC-202100954624

PATIENT
  Age: 46 Year
  Sex: Male

DRUGS (11)
  1. ALPRAZOLAM. [Suspect]
     Active Substance: ALPRAZOLAM
     Dates: end: 202106
  2. HALOPERIDOL. [Suspect]
     Active Substance: HALOPERIDOL
     Dates: end: 202106
  3. DIAZEPAM. [Suspect]
     Active Substance: DIAZEPAM
     Dates: end: 202106
  4. CANNABIS [Suspect]
     Active Substance: CANNABIS SATIVA SUBSP. INDICA TOP
     Dates: end: 202106
  5. NORDAZEPAM [Suspect]
     Active Substance: NORDAZEPAM
     Dates: end: 202106
  6. METHADONE [Suspect]
     Active Substance: METHADONE HYDROCHLORIDE
     Dates: end: 202106
  7. OXAZEPAM. [Suspect]
     Active Substance: OXAZEPAM
     Dates: end: 202106
  8. CANNABINOIDS NOS [Suspect]
     Active Substance: CANNABIDIOL
     Dates: end: 202106
  9. FLUVOXAMINE MALEATE. [Suspect]
     Active Substance: FLUVOXAMINE MALEATE
     Dates: end: 202106
  10. HYDROXYZINE HYDROCHLORIDE. [Suspect]
     Active Substance: HYDROXYZINE HYDROCHLORIDE
     Dates: end: 202106
  11. LOXAPINE SUCCINATE. [Suspect]
     Active Substance: LOXAPINE SUCCINATE
     Dates: end: 202106

REACTIONS (2)
  - Cardiac failure acute [Fatal]
  - Respiratory depression [Fatal]

NARRATIVE: CASE EVENT DATE: 202106
